FAERS Safety Report 5038140-9 (Version None)
Quarter: 2006Q2

REPORT INFORMATION
  Report Type: 
  Country: None (occurrence: None)
  Receive Date: 20060626
  Receipt Date: 20060615
  Transmission Date: 20061013
  Serious: Yes (Life-Threatening, Hospitalization)
  Sender: FDA-Public Use
  Company Number: 2006PV015697

PATIENT
  Age: 68 Year
  Sex: Male
  Weight: 120.2032 kg

DRUGS (6)
  1. BYETTA [Suspect]
     Indication: DIABETES MELLITUS NON-INSULIN-DEPENDENT
     Dosage: SEE IMAGE
     Route: 058
     Dates: start: 20060301, end: 20060101
  2. BYETTA [Suspect]
     Indication: DIABETES MELLITUS NON-INSULIN-DEPENDENT
     Dosage: SEE IMAGE
     Route: 058
     Dates: start: 20051201, end: 20060301
  3. BYETTA [Suspect]
     Indication: DIABETES MELLITUS NON-INSULIN-DEPENDENT
     Dosage: SEE IMAGE
     Route: 058
     Dates: start: 20060614
  4. COUMADIN [Suspect]
  5. PLAVIX [Suspect]
  6. GLYBURIDE [Concomitant]

REACTIONS (10)
  - ARRHYTHMIA [None]
  - BLOOD GLUCOSE DECREASED [None]
  - BLOOD GLUCOSE INCREASED [None]
  - EPISTAXIS [None]
  - FEELING ABNORMAL [None]
  - FEELING COLD [None]
  - HAEMORRHAGE [None]
  - HYPERHIDROSIS [None]
  - MOUTH HAEMORRHAGE [None]
  - WEIGHT DECREASED [None]
